FAERS Safety Report 23066423 (Version 2)
Quarter: 2023Q4

REPORT INFORMATION
  Report Type: Spontaneous
  Country: US (occurrence: US)
  Receive Date: 20231015
  Receipt Date: 20231219
  Transmission Date: 20240110
  Serious: No
  Sender: FDA-Public Use
  Company Number: US-SA-SAC20231011001088

PATIENT
  Sex: Female

DRUGS (16)
  1. DUPIXENT [Suspect]
     Active Substance: DUPILUMAB
     Indication: Asthma
     Dosage: 300 MG, QOW
     Route: 058
  2. ATORVASTATIN [Concomitant]
     Active Substance: ATORVASTATIN
  3. METOPROLOL [Concomitant]
     Active Substance: METOPROLOL
  4. BUDESONIDE [Concomitant]
     Active Substance: BUDESONIDE
  5. DOFETILIDE [Concomitant]
     Active Substance: DOFETILIDE
  6. ELIQUIS [Concomitant]
     Active Substance: APIXABAN
  7. LOSARTAN POTASSIUM [Concomitant]
     Active Substance: LOSARTAN POTASSIUM
  8. MAGNESIUM OXIDE [Concomitant]
     Active Substance: MAGNESIUM OXIDE
  9. MONTELUKAST [Concomitant]
     Active Substance: MONTELUKAST SODIUM
  10. PLAVIX [Concomitant]
     Active Substance: CLOPIDOGREL BISULFATE
  11. TORSEMIDE [Concomitant]
     Active Substance: TORSEMIDE
  12. TYLENOL [Concomitant]
     Active Substance: ACETAMINOPHEN
  13. YUPELRI [Concomitant]
     Active Substance: REVEFENACIN
  14. VITAMINS NOS [Concomitant]
     Active Substance: VITAMINS
  15. ZYRTEC [Concomitant]
     Active Substance: CETIRIZINE HYDROCHLORIDE
  16. TRIAMCINOLONE [Concomitant]
     Active Substance: TRIAMCINOLONE

REACTIONS (3)
  - Brain fog [Unknown]
  - Dyspnoea [Unknown]
  - Eye disorder [Unknown]
